FAERS Safety Report 6538411-0 (Version None)
Quarter: 2010Q1

REPORT INFORMATION
  Report Type: 
  Country: None (occurrence: None)
  Receive Date: 20100114
  Receipt Date: 20090506
  Transmission Date: 20100710
  Serious: No
  Sender: FDA-Public Use
  Company Number: US-TYCO HEALTHCARE/MALLINCKRODT-T200901031

PATIENT
  Age: 78 Year
  Sex: Male
  Weight: 83.9 kg

DRUGS (3)
  1. OXYCODONE HCL AND ACETAMINOPHEN [Suspect]
     Indication: PAIN
     Dosage: 5/325 MG, QID
     Route: 048
     Dates: start: 20090201
  2. OXYCODONE HCL AND ACETAMINOPHEN [Concomitant]
     Indication: PAIN
     Dosage: UNK
     Route: 048
     Dates: start: 20090401, end: 20090501
  3. ANTIHYPERTENSIVES [Concomitant]
     Indication: HYPERTENSION
     Dosage: UNK
     Route: 048

REACTIONS (2)
  - DRUG INEFFECTIVE [None]
  - INTENTIONAL DRUG MISUSE [None]
